FAERS Safety Report 6233887-0 (Version None)
Quarter: 2009Q2

REPORT INFORMATION
  Report Type: 
  Country: None (occurrence: None)
  Receive Date: 20090616
  Receipt Date: 20090616
  Transmission Date: 20091009
  Serious: No
  Sender: FDA-Public Use
  Company Number: None

PATIENT
  Age: 27 Year
  Sex: Female
  Weight: 55.7924 kg

DRUGS (1)
  1. YAZ [Suspect]
     Indication: CONTRACEPTION
     Dosage: 3 MG 1X DAILY PO
     Route: 048
     Dates: start: 20090101, end: 20090613

REACTIONS (5)
  - BREAST ENLARGEMENT [None]
  - BREAST PAIN [None]
  - COGNITIVE DISORDER [None]
  - FATIGUE [None]
  - LIBIDO DECREASED [None]
